FAERS Safety Report 16445813 (Version 1)
Quarter: 2019Q2

REPORT INFORMATION
  Report Type: Other
  Country: CA (occurrence: CA)
  Receive Date: 20190618
  Receipt Date: 20190618
  Transmission Date: 20190711
  Serious: Yes (Death, Hospitalization)
  Sender: FDA-Public Use
  Company Number: CA-PFIZER INC-2019252856

PATIENT
  Age: 44 Year
  Sex: Female

DRUGS (8)
  1. GRANULOCYTE COLONY STIMULATING FACTOR [Concomitant]
     Active Substance: GRANULOCYTE COLONY-STIMULATING FACTOR NOS
     Dosage: UNK
  2. CYCLOSPORINE. [Suspect]
     Active Substance: CYCLOSPORINE
     Dosage: 150 MG, 2X/DAY
     Route: 048
  3. CYCLOSPORINE. [Suspect]
     Active Substance: CYCLOSPORINE
     Dosage: 75 MG, 2X/DAY
     Route: 048
  4. CYCLOPHOSPHAMIDE. [Suspect]
     Active Substance: CYCLOPHOSPHAMIDE
     Indication: BREAST CANCER STAGE II
     Dosage: 500 MG/M2, UNK
     Route: 065
  5. CYCLOSPORINE. [Suspect]
     Active Substance: CYCLOSPORINE
     Indication: AUTOIMMUNE NEUTROPENIA
     Dosage: 75 MG, 2X/DAY
     Route: 048
  6. EPIRUBICIN HCL [Suspect]
     Active Substance: EPIRUBICIN HYDROCHLORIDE
     Indication: BREAST CANCER STAGE II
     Dosage: 100 MG/M2, UNK
     Route: 065
  7. FLUOROURACIL. [Suspect]
     Active Substance: FLUOROURACIL
     Indication: BREAST CANCER STAGE II
     Dosage: 500 MG/M2, UNK
     Route: 065
  8. NEUPOGEN [Concomitant]
     Active Substance: FILGRASTIM
     Dosage: UNK

REACTIONS (21)
  - Vomiting [Fatal]
  - Pyrexia [Fatal]
  - Febrile neutropenia [Fatal]
  - Hepatic lesion [Fatal]
  - Hilar lymphadenopathy [Fatal]
  - Breast calcifications [Fatal]
  - Stomatitis [Fatal]
  - Dyspnoea [Fatal]
  - Neoplasm progression [Fatal]
  - Hepatic steatosis [Fatal]
  - Nausea [Fatal]
  - Pulmonary mass [Fatal]
  - Second primary malignancy [Fatal]
  - Breast mass [Fatal]
  - Acute respiratory failure [Fatal]
  - Adrenal mass [Fatal]
  - Hepatic cancer [Fatal]
  - Lymphadenopathy mediastinal [Fatal]
  - Renal failure [Fatal]
  - Splenomegaly [Fatal]
  - Lung neoplasm [Fatal]
